FAERS Safety Report 5852895-2 (Version None)
Quarter: 2008Q3

REPORT INFORMATION
  Report Type: 
  Country: None (occurrence: None)
  Receive Date: 20080821
  Receipt Date: 20080812
  Transmission Date: 20090109
  Serious: Yes (Hospitalization)
  Sender: FDA-Public Use
  Company Number: PHHY2008FR13174

PATIENT
  Sex: Female
  Weight: 64 kg

DRUGS (6)
  1. ACLASTA [Suspect]
     Indication: OSTEITIS DEFORMANS
     Dosage: 5 MG, QD
     Route: 042
     Dates: start: 20080610
  2. CELECTOL [Concomitant]
     Indication: HYPERTENSION
     Dosage: 200 MG, QD
     Route: 048
     Dates: start: 20000101
  3. INDAPAMIDE [Concomitant]
     Indication: HYPERTENSION
     Dosage: 2 MG, QD
     Dates: start: 20000101
  4. PROPOXYPHENE HCL AND ACETAMINOPHEN [Concomitant]
     Indication: OSTEOARTHRITIS
     Dosage: UNK
     Route: 048
     Dates: start: 20000101
  5. ACETAMINOPHEN [Concomitant]
     Indication: OSTEOARTHRITIS
     Dosage: UNK
     Route: 048
     Dates: start: 20000101
  6. DAFLON (DIOSMIN) [Concomitant]
     Indication: VENOUS INSUFFICIENCY
     Dosage: UNK
     Route: 048
     Dates: start: 19900101

REACTIONS (12)
  - ANOREXIA [None]
  - ASTHENIA [None]
  - BLOOD PHOSPHORUS [None]
  - DIARRHOEA [None]
  - ELECTROCARDIOGRAM QT PROLONGED [None]
  - FEELING COLD [None]
  - GASTRIC DISORDER [None]
  - HYPOCALCAEMIA [None]
  - INSOMNIA [None]
  - MUSCLE SPASMS [None]
  - NAUSEA [None]
  - SOMNOLENCE [None]
